FAERS Safety Report 7089446-3 (Version None)
Quarter: 2010Q4

REPORT INFORMATION
  Report Type: 
  Country: None (occurrence: None)
  Receive Date: 20101029
  Receipt Date: 20101014
  Transmission Date: 20110411
  Serious: Yes (Disabling)
  Sender: FDA-Public Use
  Company Number: AUR-APL-2010-02596

PATIENT
  Age: 56 Year
  Sex: Male

DRUGS (3)
  1. SIMVASTATIN [Suspect]
     Indication: TRANSIENT ISCHAEMIC ATTACK
     Dosage: 40MG - ORAL
     Route: 048
     Dates: start: 20091027
  2. TRIMETHOPRIM [Concomitant]
  3. ASPIRIN [Concomitant]

REACTIONS (1)
  - TENDON RUPTURE [None]
